FAERS Safety Report 24618239 (Version 1)
Quarter: 2024Q4

REPORT INFORMATION
  Report Type: Spontaneous
  Country: US (occurrence: US)
  Receive Date: 20241114
  Receipt Date: 20241114
  Transmission Date: 20250115
  Serious: No
  Sender: Haleon PLC
  Company Number: US-MMM-5R6EI3O7

PATIENT
  Age: 34 Year
  Sex: Male
  Weight: 74.84 kg

DRUGS (1)
  1. ADVIL [Suspect]
     Active Substance: IBUPROFEN
     Indication: Product used for unknown indication
     Dosage: EXPDATE:202202

REACTIONS (2)
  - Expired product administered [Unknown]
  - Product quality issue [Unknown]
